FAERS Safety Report 6028298-7 (Version None)
Quarter: 2009Q1

REPORT INFORMATION
  Report Type: 
  Country: None (occurrence: None)
  Receive Date: 20090106
  Receipt Date: 20090102
  Transmission Date: 20090719
  Serious: Yes (Death, Hospitalization)
  Sender: FDA-Public Use
  Company Number: IN-ELI_LILLY_AND_COMPANY-IN200901000094

PATIENT
  Sex: Male

DRUGS (1)
  1. GEMCITABINE HCL [Suspect]
     Indication: NON-SMALL CELL LUNG CANCER
     Dosage: UNK, DAY ONE AND DAY EIGHT OF CYCLE ONE
     Route: 042

REACTIONS (3)
  - DEATH [None]
  - FULL BLOOD COUNT DECREASED [None]
  - MALIGNANT NEOPLASM PROGRESSION [None]
